FAERS Safety Report 5963771-9 (Version None)
Quarter: 2008Q4

REPORT INFORMATION
  Report Type: 
  Country: None (occurrence: None)
  Receive Date: 20081124
  Receipt Date: 20081119
  Transmission Date: 20090506
  Serious: Yes (Death, Other)
  Sender: FDA-Public Use
  Company Number: IT-CELGENEUS-083-21880-08101976

PATIENT
  Sex: Male

DRUGS (5)
  1. REVLIMID [Suspect]
     Indication: MULTIPLE MYELOMA
     Route: 048
     Dates: start: 20081011, end: 20081021
  2. DEXAMETHASONE 0.5MG TAB [Suspect]
     Indication: MULTIPLE MYELOMA
     Route: 065
  3. PREDNISONE TAB [Suspect]
     Indication: MULTIPLE MYELOMA
     Dosage: 40
     Route: 065
     Dates: start: 20081011
  4. ANTIBIOTICS [Concomitant]
     Indication: PROPHYLAXIS
     Route: 065
  5. ANTITHROMBOTICS [Concomitant]
     Indication: PROPHYLAXIS
     Route: 065

REACTIONS (7)
  - BACTERIAL INFECTION [None]
  - CYTOMEGALOVIRUS INFECTION [None]
  - FATIGUE [None]
  - HAEMATOTOXICITY [None]
  - HEPATOTOXICITY [None]
  - PYREXIA [None]
  - SEPTIC SHOCK [None]
